FAERS Safety Report 11094186 (Version 1)
Quarter: 2015Q2

REPORT INFORMATION
  Report Type: Spontaneous
  Country: FR (occurrence: FR)
  Receive Date: 20150506
  Receipt Date: 20150506
  Transmission Date: 20150821
  Serious: Yes (Hospitalization, Other)
  Sender: FDA-Public Use
  Company Number: FR-GLAXOSMITHKLINE INC.-FR2015GSK057227

PATIENT
  Age: 54 Year
  Sex: Female

DRUGS (9)
  1. MOVICOL [Concomitant]
     Active Substance: POLYETHYLENE GLYCOL 3350\POTASSIUM CHLORIDE\SODIUM BICARBONATE\SODIUM CHLORIDE
     Dosage: 3 UNK, QD
     Route: 048
     Dates: end: 20150402
  2. PYRIDOXINE HYDROCHLORIDE. [Concomitant]
     Active Substance: PYRIDOXINE HYDROCHLORIDE
     Dosage: UNK
     Route: 048
     Dates: end: 20150402
  3. NORSET [Concomitant]
     Active Substance: MIRTAZAPINE
     Dosage: 15 MG, QD
     Route: 048
     Dates: end: 20150402
  4. CYSTINE B6 [Concomitant]
     Dosage: UNK
     Route: 048
     Dates: end: 20150402
  5. LAMICTAL [Suspect]
     Active Substance: LAMOTRIGINE
     Indication: PRODUCT USED FOR UNKNOWN INDICATION
     Dosage: 175 MG, QD
     Route: 048
     Dates: start: 201502, end: 20150402
  6. PICOPREP [Concomitant]
     Active Substance: CITRIC ACID MONOHYDRATE\MAGNESIUM OXIDE\SODIUM PICOSULFATE
     Dosage: 0.142 UNK, QD
     Route: 048
     Dates: end: 20150402
  7. PENTASA [Concomitant]
     Active Substance: MESALAMINE
     Dosage: 2 G, QD
     Route: 048
     Dates: start: 2013
  8. LYSANXIA [Concomitant]
     Active Substance: PRAZEPAM
     Dosage: 10 MG, TID
     Route: 048
     Dates: end: 20150402
  9. OMEPRAZOLE. [Concomitant]
     Active Substance: OMEPRAZOLE
     Dosage: 20 MG, QD
     Route: 048
     Dates: end: 20150402

REACTIONS (1)
  - Drug reaction with eosinophilia and systemic symptoms [Recovering/Resolving]

NARRATIVE: CASE EVENT DATE: 20150328
